FAERS Safety Report 4584305-X (Version None)
Quarter: 2005Q1

REPORT INFORMATION
  Report Type: 
  Country: None (occurrence: None)
  Receive Date: 20050125
  Receipt Date: 20041116
  Transmission Date: 20050727
  Serious: No
  Sender: FDA-Public Use
  Company Number: USA041082240

PATIENT
  Age: 75 Year
  Sex: Female

DRUGS (2)
  1. FORTEO [Suspect]
     Indication: OSTEOPOROSIS
     Dosage: 20 UG
     Dates: start: 20040801
  2. CALCIUM GLUCONATE [Concomitant]

REACTIONS (5)
  - DIFFICULTY IN WALKING [None]
  - FATIGUE [None]
  - JOINT RANGE OF MOTION DECREASED [None]
  - PAIN [None]
  - URINARY TRACT INFECTION [None]
